FAERS Safety Report 11779260 (Version 3)
Quarter: 2015Q4

REPORT INFORMATION
  Report Type: Report from Study
  Country: DE (occurrence: US)
  Receive Date: 20151125
  Receipt Date: 20151209
  Transmission Date: 20160304
  Serious: Yes (Hospitalization, Other)
  Sender: FDA-Public Use
  Company Number: DE-ACTELION-A-US2015-127904

PATIENT
  Age: 63 Year
  Sex: Female
  Weight: 87.98 kg

DRUGS (6)
  1. RIOCIGUAT [Suspect]
     Active Substance: RIOCIGUAT
     Indication: PULMONARY HYPERTENSION
     Dosage: 0.5 MG, TID
     Route: 048
     Dates: start: 20150415
  2. RIOCIGUAT [Suspect]
     Active Substance: RIOCIGUAT
     Dosage: 2 MG, TID
     Route: 048
  3. RIOCIGUAT [Suspect]
     Active Substance: RIOCIGUAT
     Dosage: 1.5 MG, TID
     Route: 048
  4. VENTAVIS [Suspect]
     Active Substance: ILOPROST
     Indication: PULMONARY ARTERIAL HYPERTENSION
     Route: 055
  5. SILDENAFIL. [Concomitant]
     Active Substance: SILDENAFIL
  6. RIOCIGUAT [Suspect]
     Active Substance: RIOCIGUAT
     Dosage: 2.5 MG, TID
     Route: 048

REACTIONS (13)
  - Coronary arterial stent insertion [Recovering/Resolving]
  - Paranasal sinus discomfort [Recovered/Resolved]
  - Abdominal pain upper [Unknown]
  - Muscle spasms [Unknown]
  - Back pain [Unknown]
  - Hospitalisation [Unknown]
  - Vision blurred [Unknown]
  - Chest pain [Unknown]
  - Irritable bowel syndrome [Unknown]
  - Abdominal discomfort [Recovered/Resolved]
  - Headache [Recovered/Resolved]
  - Gastric disorder [Unknown]
  - Insomnia [Recovering/Resolving]
